FAERS Safety Report 6790412-3 (Version None)
Quarter: 2010Q2

REPORT INFORMATION
  Report Type: 
  Country: None (occurrence: None)
  Receive Date: 20100624
  Receipt Date: 20090629
  Transmission Date: 20101027
  Serious: Yes (Hospitalization)
  Sender: FDA-Public Use
  Company Number: FR-SANOFI-AVENTIS-200912399FR

PATIENT
  Age: 44 Year
  Sex: Female

DRUGS (15)
  1. PENTOXIFYLLINE [Suspect]
     Indication: DRUG USE FOR UNKNOWN INDICATION
     Dosage: DOSE UNIT: 400 MG
     Route: 048
     Dates: start: 20090101, end: 20090608
  2. OXYBUTYNIN CHLORIDE [Suspect]
     Indication: DRUG USE FOR UNKNOWN INDICATION
     Dosage: DOSE UNIT: 5 MG
     Route: 048
     Dates: start: 20090101, end: 20090608
  3. CYMBALTA [Suspect]
     Indication: DRUG USE FOR UNKNOWN INDICATION
     Dosage: DOSE UNIT: 30 MG
     Route: 048
     Dates: start: 20090401, end: 20090608
  4. LYRICA [Suspect]
     Indication: DRUG USE FOR UNKNOWN INDICATION
     Route: 048
     Dates: start: 20090101, end: 20090608
  5. LEXOMIL [Suspect]
     Indication: DRUG USE FOR UNKNOWN INDICATION
     Route: 048
     Dates: start: 20090101, end: 20090608
  6. DI-ANTALVIC [Concomitant]
     Route: 048
  7. ARIXTRA [Concomitant]
     Indication: DRUG USE FOR UNKNOWN INDICATION
  8. ATARAX [Concomitant]
     Indication: DRUG USE FOR UNKNOWN INDICATION
     Dosage: DOSE UNIT: 100 MG
     Route: 048
  9. CORTANCYL [Concomitant]
     Indication: DRUG USE FOR UNKNOWN INDICATION
     Dosage: DOSE UNIT: 5 MG
     Route: 048
  10. ESOMEPRAZOLE [Concomitant]
     Indication: DRUG USE FOR UNKNOWN INDICATION
     Dosage: DOSE UNIT: 20 MG
     Route: 048
  11. OSTRAM [Concomitant]
     Indication: DRUG USE FOR UNKNOWN INDICATION
     Route: 048
  12. FLUTICASONE W/SALMETEROL [Concomitant]
     Indication: DRUG USE FOR UNKNOWN INDICATION
     Dosage: DOSE UNIT: 250 UG
     Route: 055
  13. SPIRIVA [Concomitant]
     Indication: DRUG USE FOR UNKNOWN INDICATION
     Dosage: DOSE UNIT: 18 UG
     Route: 055
  14. POLARAMINE [Concomitant]
     Indication: DRUG USE FOR UNKNOWN INDICATION
     Dosage: DOSE UNIT: 2 MG
     Route: 048
  15. CERAT DE GALIEN [Concomitant]
     Indication: DRUG USE FOR UNKNOWN INDICATION

REACTIONS (3)
  - HEPATITIS CHOLESTATIC [None]
  - JAUNDICE [None]
  - PYREXIA [None]
